FAERS Safety Report 19696433 (Version 2)
Quarter: 2021Q4

REPORT INFORMATION
  Report Type: Spontaneous
  Country: US (occurrence: US)
  Receive Date: 20210813
  Receipt Date: 20211112
  Transmission Date: 20220304
  Serious: No
  Sender: FDA-Public Use
  Company Number: US-SUN PHARMACEUTICAL INDUSTRIES LTD-2021R1-305124

PATIENT
  Sex: Male
  Weight: 77.098 kg

DRUGS (5)
  1. EPOPROSTENOL [Suspect]
     Active Substance: EPOPROSTENOL
     Indication: Pulmonary arterial hypertension
     Dosage: 34 NG/KG/MIN CONTINUOUS
     Route: 042
     Dates: start: 20210422
  2. EPOPROSTENOL [Suspect]
     Active Substance: EPOPROSTENOL
     Dosage: 40 NG/KG/MIN CONTINUOUS
     Route: 042
     Dates: start: 20210412
  3. EPOPROSTENOL [Suspect]
     Active Substance: EPOPROSTENOL
     Dosage: 40 NG/KG/MIN CONTINUOUS
     Route: 042
     Dates: start: 20210412
  4. ELIQUIS [Concomitant]
     Active Substance: APIXABAN
     Indication: Product used for unknown indication
     Dosage: UNK
     Route: 065
  5. OPSUMIT [Concomitant]
     Active Substance: MACITENTAN
     Indication: Product used for unknown indication
     Route: 065

REACTIONS (6)
  - Headache [Recovering/Resolving]
  - Product use issue [Unknown]
  - Product container issue [Unknown]
  - Dyspnoea [Unknown]
  - Diarrhoea [Unknown]
  - Arthralgia [Unknown]
